FAERS Safety Report 7745335-X (Version None)
Quarter: 2011Q3

REPORT INFORMATION
  Report Type: 
  Country: None (occurrence: None)
  Receive Date: 20110825
  Receipt Date: 20110609
  Transmission Date: 20111222
  Serious: No
  Sender: FDA-Public Use
  Company Number: 329880

PATIENT
  Age: 58 Year
  Sex: Male

DRUGS (1)
  1. VICTOZA [Suspect]
     Indication: TYPE 2 DIABETES MELLITUS
     Dosage: 0.6 MG, QD, SUBCUTANEOUS; 1.2 MG, QD, SUBCUTANEOUS; 1.8 MG, QD, SUBCUTANEOUS; 0.9 MG, QD, SUBCUTANEO
     Route: 058
     Dates: start: 20110101

REACTIONS (2)
  - WEIGHT DECREASED [None]
  - DIARRHOEA [None]
